FAERS Safety Report 26137518 (Version 4)
Quarter: 2025Q4

REPORT INFORMATION
  Report Type: Report from Study
  Country: JP (occurrence: JP)
  Receive Date: 20251209
  Receipt Date: 20251228
  Transmission Date: 20260118
  Serious: Yes (Hospitalization, Other)
  Sender: TAKEDA
  Company Number: JP-TAKEDA-2025TJP012416

PATIENT
  Age: 14 Year
  Sex: Male

DRUGS (6)
  1. RURIOCTOCOG ALFA PEGOL [Suspect]
     Active Substance: RURIOCTOCOG ALFA PEGOL
     Indication: Factor VIII deficiency
     Dosage: 2000 INTERNATIONAL UNIT, 2/WEEK
     Dates: start: 2023
  2. RURIOCTOCOG ALFA PEGOL [Suspect]
     Active Substance: RURIOCTOCOG ALFA PEGOL
  3. RURIOCTOCOG ALFA PEGOL [Suspect]
     Active Substance: RURIOCTOCOG ALFA PEGOL
  4. ADVATE [Suspect]
     Active Substance: ANTIHEMOPHILIC FACTOR, HUMAN RECOMBINANT
     Indication: Factor VIII deficiency
     Dosage: UNK
  5. ADVATE [Suspect]
     Active Substance: ANTIHEMOPHILIC FACTOR, HUMAN RECOMBINANT
  6. ADVATE [Suspect]
     Active Substance: ANTIHEMOPHILIC FACTOR, HUMAN RECOMBINANT

REACTIONS (12)
  - Haemarthrosis [Unknown]
  - Muscle haemorrhage [Unknown]
  - Extradural haematoma [Unknown]
  - Skull fracture [Unknown]
  - Muscle haemorrhage [Recovered/Resolved]
  - Muscle haemorrhage [Unknown]
  - Muscle haemorrhage [Unknown]
  - Muscle haemorrhage [Unknown]
  - Cellulitis staphylococcal [Unknown]
  - Anti factor VIII antibody positive [Recovered/Resolved]
  - Device failure [Unknown]
  - Underdose [Unknown]

NARRATIVE: CASE EVENT DATE: 20120101
